FAERS Safety Report 12574390 (Version 1)
Quarter: 2016Q3

REPORT INFORMATION
  Report Type: Spontaneous
  Country: US (occurrence: None)
  Receive Date: 20160719
  Receipt Date: 20160719
  Transmission Date: 20161109
  Serious: Yes (Hospitalization)
  Sender: FDA-Public Use
  Company Number: None

PATIENT
  Age: 64 Year
  Sex: Male
  Weight: 167.64 kg

DRUGS (1)
  1. TEMOZOLOMIDE. [Suspect]
     Active Substance: TEMOZOLOMIDE
     Dates: end: 20160608

REACTIONS (5)
  - Fall [None]
  - Cellulitis [None]
  - Staphylococcus test positive [None]
  - Laceration [None]
  - Abscess [None]

NARRATIVE: CASE EVENT DATE: 20160623
